FAERS Safety Report 9715660 (Version 6)
Quarter: 2015Q2

REPORT INFORMATION
  Report Type: Report from Study
  Country: DE (occurrence: DE)
  Receive Date: 20131127
  Receipt Date: 20150616
  Transmission Date: 20150821
  Serious: Yes (Death, Life-Threatening, Hospitalization, Other)
  Sender: FDA-Public Use
  Company Number: DE-ROCHE-1212967

PATIENT
  Age: 71 Year
  Sex: Male

DRUGS (7)
  1. TAXOL [Suspect]
     Active Substance: PACLITAXEL
     Indication: NON-SMALL CELL LUNG CANCER
     Dosage: 175 MG/2
     Route: 042
     Dates: start: 20130404, end: 20130806
  2. CARBOPLATIN. [Suspect]
     Active Substance: CARBOPLATIN
     Indication: NON-SMALL CELL LUNG CANCER
     Dosage: AUC 5
     Route: 042
     Dates: start: 20130404, end: 20130806
  3. ENALAPRIL [Concomitant]
     Active Substance: ENALAPRIL
  4. BEVACIZUMAB [Suspect]
     Active Substance: BEVACIZUMAB
     Indication: NON-SMALL CELL LUNG CANCER
     Dosage: 7.5 MG/KG, LAST DOSE PRIOR TO SAE 24/JUL/2013
     Route: 042
     Dates: start: 20130404, end: 20130724
  5. BISOPROLOL [Concomitant]
     Active Substance: BISOPROLOL
  6. BEVACIZUMAB [Suspect]
     Active Substance: BEVACIZUMAB
     Route: 042
     Dates: end: 20130806
  7. PRADAXA [Concomitant]
     Active Substance: DABIGATRAN ETEXILATE MESYLATE

REACTIONS (6)
  - Pneumothorax [Recovered/Resolved]
  - Dyspnoea [Not Recovered/Not Resolved]
  - Troponin increased [Unknown]
  - Chest pain [Recovering/Resolving]
  - Epistaxis [Recovered/Resolved]
  - Sepsis [Fatal]

NARRATIVE: CASE EVENT DATE: 20130408
